FAERS Safety Report 7179196-7 (Version None)
Quarter: 2010Q4

REPORT INFORMATION
  Report Type: 
  Country: None (occurrence: None)
  Receive Date: 20101217
  Receipt Date: 20101217
  Transmission Date: 20110411
  Serious: Yes (Hospitalization)
  Sender: FDA-Public Use
  Company Number: None

PATIENT
  Age: 51 Year
  Sex: Male
  Weight: 83 kg

DRUGS (2)
  1. LITHIUM CARBONATE [Suspect]
     Indication: BIPOLAR I DISORDER
     Dosage: 450 MG TID PO
     Route: 048
     Dates: start: 20100415, end: 20101017
  2. DULOXETINE HYDROCHLORIDE (CYMBALTA) [Suspect]
     Indication: DEPRESSION
     Dosage: 30 MG EVERY DAY PO
     Route: 048
     Dates: start: 20100913, end: 20101017

REACTIONS (2)
  - ANTIDEPRESSANT DRUG LEVEL ABOVE THERAPEUTIC [None]
  - CONFUSIONAL STATE [None]
